FAERS Safety Report 7311175-9 (Version None)
Quarter: 2011Q1

REPORT INFORMATION
  Report Type: 
  Country: None (occurrence: None)
  Receive Date: 20110224
  Receipt Date: 20110218
  Transmission Date: 20110831
  Serious: Yes (Hospitalization)
  Sender: FDA-Public Use
  Company Number: MA-ROCHE-759285

PATIENT
  Age: 71 Year
  Sex: Male
  Weight: 52 kg

DRUGS (3)
  1. METHOTREXATE [Concomitant]
     Dates: start: 20060101, end: 20101227
  2. TOCILIZUMAB [Suspect]
     Indication: RHEUMATOID ARTHRITIS
     Dosage: DATE OF LAST DOSE PRIOR TO SAE: 23 DEC 2010.
     Route: 042
     Dates: start: 20100722, end: 20101227
  3. PREDNISONE [Concomitant]
     Dates: start: 20060101

REACTIONS (1)
  - NECROTISING FASCIITIS [None]
